FAERS Safety Report 9662373 (Version 1)
Quarter: 2013Q4

REPORT INFORMATION
  Report Type: Spontaneous
  Country: US (occurrence: US)
  Receive Date: 20131031
  Receipt Date: 20131031
  Transmission Date: 20140711
  Serious: No
  Sender: FDA-Public Use
  Company Number: US-PURDUE-USA-2011-0071186

PATIENT
  Sex: Female

DRUGS (4)
  1. OXYCONTIN (NDA 22-272) [Suspect]
     Indication: PRODUCT USED FOR UNKNOWN INDICATION
     Dosage: 15 MG, BID
  2. ADDERALL [Concomitant]
     Dosage: 40 MG, UNK
  3. ATIVAN [Concomitant]
     Dosage: 2 MG, UNK
  4. ULTRAM [Concomitant]
     Dosage: 1 DF, TID

REACTIONS (1)
  - Pain [Unknown]
